FAERS Safety Report 7044490-7 (Version None)
Quarter: 2010Q4

REPORT INFORMATION
  Report Type: 
  Country: None (occurrence: None)
  Receive Date: 20101014
  Receipt Date: 20101005
  Transmission Date: 20110411
  Serious: Yes (Other)
  Sender: FDA-Public Use
  Company Number: SE-BAXTER-2010BH024062

PATIENT
  Age: 19 Year
  Sex: Male
  Weight: 90 kg

DRUGS (2)
  1. GAMMAGARD LIQUID [Suspect]
     Indication: CONGENITAL HYPOGAMMAGLOBULINAEMIA
     Route: 042
     Dates: start: 20100903, end: 20100903
  2. GAMMAGARD LIQUID [Suspect]
     Indication: PRIMARY IMMUNODEFICIENCY SYNDROME
     Route: 042
     Dates: start: 20100903, end: 20100903

REACTIONS (11)
  - CHEST DISCOMFORT [None]
  - COLD SWEAT [None]
  - CYANOSIS [None]
  - DERMATITIS EXFOLIATIVE [None]
  - DYSPNOEA [None]
  - ELECTROCARDIOGRAM ST-T CHANGE [None]
  - ERYTHEMA [None]
  - HEART RATE INCREASED [None]
  - HYPERTENSION [None]
  - OCULAR HYPERAEMIA [None]
  - PHARYNGEAL OEDEMA [None]
